FAERS Safety Report 8521241-8 (Version None)
Quarter: 2012Q3

REPORT INFORMATION
  Report Type: 
  Country: None (occurrence: None)
  Receive Date: 20120712
  Receipt Date: 20120712
  Transmission Date: 20120928
  Serious: Yes (Hospitalization)
  Sender: FDA-Public Use
  Company Number: None

PATIENT
  Age: 59 Year
  Sex: Female
  Weight: 81 kg

DRUGS (3)
  1. CISPLATIN [Suspect]
     Dosage: 30 MG/M2 WEEKLY IV BOLUS
     Route: 040
     Dates: start: 20120515, end: 20120625
  2. CETUXIMAB [Suspect]
     Indication: HEAD AND NECK CANCER
     Dosage: 250 MG/M2 WEEKLY IV BOLUS
     Route: 040
     Dates: start: 20120505, end: 20120625
  3. CETUXIMAB [Suspect]
     Indication: NEOPLASM RECURRENCE
     Dosage: 250 MG/M2 WEEKLY IV BOLUS
     Route: 040
     Dates: start: 20120505, end: 20120625

REACTIONS (6)
  - FLUID INTAKE REDUCED [None]
  - VOMITING [None]
  - NAUSEA [None]
  - DEVICE DISLOCATION [None]
  - MEDICAL DEVICE COMPLICATION [None]
  - HYPOPHAGIA [None]
